FAERS Safety Report 9782344 (Version 1)
Quarter: 2013Q4

REPORT INFORMATION
  Report Type: Report from Study
  Country: KR (occurrence: KR)
  Receive Date: 20131226
  Receipt Date: 20131226
  Transmission Date: 20140711
  Serious: No
  Sender: FDA-Public Use
  Company Number: PHHY2013KR149690

PATIENT
  Age: 60 Year
  Sex: Female

DRUGS (2)
  1. AMN107 [Suspect]
     Indication: CHRONIC MYELOID LEUKAEMIA
     Dosage: 800 MG, PER DAY
     Route: 048
     Dates: start: 20120822
  2. CAROL-F [Concomitant]
     Indication: HYPERTHYROIDISM
     Dosage: 3 DF, UNK
     Route: 048
     Dates: start: 20120702, end: 20120910

REACTIONS (1)
  - Hypothyroidism [Not Recovered/Not Resolved]
